FAERS Safety Report 9253064 (Version 1)
Quarter: 2013Q2

REPORT INFORMATION
  Report Type: Spontaneous
  Country: US (occurrence: US)
  Receive Date: 20130424
  Receipt Date: 20130424
  Transmission Date: 20140414
  Serious: Yes (Other)
  Sender: FDA-Public Use
  Company Number: CHPA2013US006636

PATIENT
  Age: 3 Year
  Sex: Female

DRUGS (1)
  1. PREVACID 24HR 15MG [Suspect]
     Indication: GASTROOESOPHAGEAL REFLUX DISEASE
     Dosage: 15 MG, QD
     Route: 048
     Dates: start: 201303

REACTIONS (7)
  - Sinusitis [Recovered/Resolved]
  - Fatigue [Not Recovered/Not Resolved]
  - Sleep disorder [Not Recovered/Not Resolved]
  - Off label use [Unknown]
  - Prescribed overdose [Unknown]
  - Wrong technique in drug usage process [Unknown]
  - Incorrect drug administration duration [Unknown]
